FAERS Safety Report 8432146-5 (Version None)
Quarter: 2012Q2

REPORT INFORMATION
  Report Type: 
  Country: None (occurrence: None)
  Receive Date: 20120613
  Receipt Date: 20120605
  Transmission Date: 20120825
  Serious: Yes (Other)
  Sender: FDA-Public Use
  Company Number: DE-SANOFI-AVENTIS-2011SA007129

PATIENT
  Age: 76 Year
  Sex: Female

DRUGS (9)
  1. MARCUMAR [Concomitant]
     Indication: ATRIAL FIBRILLATION
     Dosage: DOSAGE: ACCORDING TO INR
     Route: 065
  2. MOLSIDOMINE [Concomitant]
     Dosage: DOSAGE: 1-0-1/2
     Route: 065
  3. MULTAQ [Suspect]
     Indication: ATRIAL FIBRILLATION
     Route: 048
     Dates: start: 20101113, end: 20110131
  4. FLUVASTATIN [Concomitant]
     Route: 065
     Dates: start: 20070201
  5. DIPYRONE TAB [Concomitant]
     Route: 065
  6. OLMESARTAN MEDOXOMIL/HYDROCHLOROTHIAZIDE [Suspect]
     Dosage: DOSAGE: 20/12.5 MG
     Route: 048
     Dates: start: 20061101, end: 20110209
  7. LEVOTHYROXINE SODIUM [Concomitant]
     Route: 065
  8. MOLSIDOMINE [Concomitant]
     Dosage: DOSAGE: 1-0-1/2
     Route: 065
  9. OMEPRAZOLE [Concomitant]
     Route: 065
     Dates: start: 20080101

REACTIONS (12)
  - WEIGHT DECREASED [None]
  - ACIDOSIS [None]
  - ASTHENIA [None]
  - DECREASED APPETITE [None]
  - DYSPNOEA [None]
  - GLOMERULAR FILTRATION RATE DECREASED [None]
  - NAUSEA [None]
  - COUGH [None]
  - RENAL FAILURE ACUTE [None]
  - BLOOD UREA INCREASED [None]
  - ANAEMIA [None]
  - BLOOD CREATININE INCREASED [None]
